FAERS Safety Report 9786489 (Version 1)
Quarter: 2013Q4

REPORT INFORMATION
  Report Type: Spontaneous
  Country: US (occurrence: US)
  Receive Date: 20131227
  Receipt Date: 20131227
  Transmission Date: 20140711
  Serious: Yes (Other)
  Sender: FDA-Public Use
  Company Number: US-BRISTOL-MYERS SQUIBB COMPANY-19935279

PATIENT
  Sex: Male

DRUGS (3)
  1. BYETTA [Suspect]
     Dosage: LAST DOSE ON JUN08
     Dates: start: 200511, end: 200806
  2. JANUVIA [Suspect]
     Dosage: LAST DOSE ON OCT11
     Dates: start: 200809, end: 201110
  3. VICTOZA [Suspect]
     Dosage: LAST DOSE ON DEC11
     Dates: start: 201101, end: 201112

REACTIONS (1)
  - Thyroid cancer [Unknown]
